FAERS Safety Report 6403027-3 (Version None)
Quarter: 2009Q4

REPORT INFORMATION
  Report Type: 
  Country: None (occurrence: None)
  Receive Date: 20091014
  Receipt Date: 20091014
  Transmission Date: 20100525
  Serious: Yes (Disabling)
  Sender: FDA-Public Use
  Company Number: None

PATIENT
  Sex: Male
  Weight: 77.3 kg

DRUGS (4)
  1. ZICAM (ZINCUM GLUCONIUM 2X) [Suspect]
     Indication: HYPOSMIA
     Dosage: SWAB FLU SEASON NASAL
     Route: 045
     Dates: start: 20080101, end: 20090101
  2. METFORMIN [Concomitant]
  3. GLYBURIDE [Concomitant]
  4. VERAMYST [Concomitant]

REACTIONS (1)
  - ANOSMIA [None]
